FAERS Safety Report 8312935-8 (Version None)
Quarter: 2012Q2

REPORT INFORMATION
  Report Type: 
  Country: None (occurrence: None)
  Receive Date: 20120426
  Receipt Date: 20120227
  Transmission Date: 20120825
  Serious: No
  Sender: FDA-Public Use
  Company Number: US-MYLANLABS-2012S1002066

PATIENT
  Age: 69 Year
  Sex: Female

DRUGS (8)
  1. BUPROPION HYDROCHLORIDE [Suspect]
     Route: 048
  2. SYNTHROID [Concomitant]
  3. VITAMIN TAB [Concomitant]
  4. VITAMIN D [Concomitant]
  5. FOLIC ACID [Concomitant]
  6. CALCIUM [Concomitant]
  7. SYNTHROID [Concomitant]
  8. VITAMIN B-12 [Concomitant]
     Route: 058

REACTIONS (1)
  - TREMOR [None]
